FAERS Safety Report 6477845-X (Version None)
Quarter: 2009Q4

REPORT INFORMATION
  Report Type: 
  Country: None (occurrence: None)
  Receive Date: 20091207
  Receipt Date: 20091125
  Transmission Date: 20100525
  Serious: Yes (Other)
  Sender: FDA-Public Use
  Company Number: DE-ELI_LILLY_AND_COMPANY-DE200911007051

PATIENT
  Sex: Female

DRUGS (11)
  1. YENTREVE [Suspect]
     Indication: INCONTINENCE
     Dosage: 20 MG, UNKNOWN
     Route: 048
  2. LISINOPRIL [Concomitant]
     Dosage: 20
  3. METOPROLOL [Concomitant]
     Dosage: 200
  4. NITRENDIPIN [Concomitant]
     Dosage: 20
  5. L-THYROXIN [Concomitant]
     Dosage: 250
  6. ALLOPURINOL [Concomitant]
     Dosage: 300
  7. ASPIRIN [Concomitant]
     Dosage: 100
  8. RESTEX [Concomitant]
  9. TRAMAL                                  /GFR/ [Concomitant]
     Dosage: 100
  10. CALCIUM [Concomitant]
     Dosage: 600
  11. VITAMIN D [Concomitant]
     Dosage: 300

REACTIONS (2)
  - ANGINA PECTORIS [None]
  - MUSCLE TWITCHING [None]
